FAERS Safety Report 9843966 (Version 1)
Quarter: 2013Q4

REPORT INFORMATION
  Report Type: Spontaneous
  Country: US (occurrence: None)
  Receive Date: 20131223
  Receipt Date: 20131223
  Transmission Date: 20140711
  Serious: No
  Sender: FDA-Public Use
  Company Number: 1000050098

PATIENT
  Age: 65 Year
  Sex: Female

DRUGS (1)
  1. LINZESS (LINACLOTIDE) (145 MICROGRAM, CAPSULES) [Suspect]
     Dosage: 290 MCG (145 MCG, 2 IN 1 D), ORAL
     Route: 048
     Dates: start: 201309

REACTIONS (3)
  - Restless legs syndrome [None]
  - Tremor [None]
  - Off label use [None]
